FAERS Safety Report 9107658 (Version 3)
Quarter: 2013Q3

REPORT INFORMATION
  Report Type: Spontaneous
  Country: US (occurrence: US)
  Receive Date: 20130221
  Receipt Date: 20130701
  Transmission Date: 20140515
  Serious: Yes (Hospitalization, Other)
  Sender: FDA-Public Use
  Company Number: US-009507513-1206USA03013

PATIENT
  Sex: Female

DRUGS (5)
  1. FOSAMAX [Suspect]
     Indication: OSTEOPOROSIS
     Dosage: UNK
     Route: 048
     Dates: start: 199510, end: 200805
  2. FOSAMAX [Suspect]
     Indication: OSTEOPENIA
  3. ALENDRONATE SODIUM [Suspect]
     Indication: OSTEOPOROSIS
     Dosage: UNK
     Route: 048
     Dates: start: 20080609, end: 201104
  4. ESTRACE [Concomitant]
     Indication: MENOPAUSE
  5. FLONASE [Concomitant]
     Indication: HYPERSENSITIVITY

REACTIONS (24)
  - Open reduction of fracture [Unknown]
  - Cholecystectomy [Unknown]
  - Surgery [Unknown]
  - Skin cancer [Not Recovered/Not Resolved]
  - Skin cancer [Unknown]
  - Femur fracture [Unknown]
  - Fibromyalgia [Unknown]
  - Hepatic cirrhosis [Unknown]
  - Arthritis [Unknown]
  - Dental implantation [Unknown]
  - Low turnover osteopathy [Unknown]
  - Osteoarthritis [Unknown]
  - Vertebroplasty [Unknown]
  - Groin pain [Unknown]
  - Macular degeneration [Unknown]
  - Spinal compression fracture [Unknown]
  - Dyspnoea exertional [Unknown]
  - Kyphosis [Unknown]
  - Fracture delayed union [Unknown]
  - Stress [Unknown]
  - Hypertension [Unknown]
  - Rheumatoid arthritis [Unknown]
  - Musculoskeletal pain [Unknown]
  - Back pain [Not Recovered/Not Resolved]
